FAERS Safety Report 22217604 (Version 1)
Quarter: 2023Q2

REPORT INFORMATION
  Report Type: Spontaneous
  Country: US (occurrence: US)
  Receive Date: 20230417
  Receipt Date: 20230417
  Transmission Date: 20230721
  Serious: No
  Sender: FDA-Public Use
  Company Number: US-TAKEDA-2023TUS038393

PATIENT

DRUGS (1)
  1. VYVANSE [Suspect]
     Active Substance: LISDEXAMFETAMINE DIMESYLATE
     Indication: Fatigue
     Dosage: UNK
     Route: 065

REACTIONS (2)
  - Product prescribing issue [Unknown]
  - No adverse event [Unknown]
